FAERS Safety Report 9457714 (Version 2)
Quarter: 2013Q3

REPORT INFORMATION
  Report Type: Spontaneous
  Country: IT (occurrence: IT)
  Receive Date: 20130814
  Receipt Date: 20130910
  Transmission Date: 20140515
  Serious: Yes (Life-Threatening)
  Sender: FDA-Public Use
  Company Number: IT-RANBAXY-2013R1-72056

PATIENT
  Age: 52 Year
  Sex: Female

DRUGS (2)
  1. AMOXICILLIN/CLAVULANIC ACID [Suspect]
     Indication: PRODUCT USED FOR UNKNOWN INDICATION
     Dosage: 1 DOSAGE UNIT, COMPLETE
     Route: 048
     Dates: start: 20130222, end: 20130222
  2. VIVIN C [Concomitant]
     Indication: PRODUCT USED FOR UNKNOWN INDICATION
     Dosage: UNK
     Route: 065

REACTIONS (1)
  - Anaphylactic shock [Recovering/Resolving]
